FAERS Safety Report 7949599-9 (Version None)
Quarter: 2011Q4

REPORT INFORMATION
  Report Type: 
  Country: None (occurrence: None)
  Receive Date: 20111130
  Receipt Date: 20111123
  Transmission Date: 20120403
  Serious: Yes (Hospitalization)
  Sender: FDA-Public Use
  Company Number: US-ELI_LILLY_AND_COMPANY-US201111008203

PATIENT
  Age: 63 Year
  Sex: Male

DRUGS (3)
  1. CISPLATIN [Concomitant]
     Dosage: UNK, UNKNOWN
  2. ALIMTA [Suspect]
     Indication: MESOTHELIOMA
     Dosage: UNK, UNKNOWN
  3. CARBOPLATIN [Concomitant]
     Dosage: UNK, UNKNOWN

REACTIONS (2)
  - CARDIOMYOPATHY [None]
  - FLUID OVERLOAD [None]
